FAERS Safety Report 5043101-X (Version None)
Quarter: 2006Q2

REPORT INFORMATION
  Report Type: 
  Country: None (occurrence: None)
  Receive Date: 20060628
  Receipt Date: 20060617
  Transmission Date: 20061013
  Serious: Yes (Hospitalization)
  Sender: FDA-Public Use
  Company Number: 20063044

PATIENT
  Age: 28 Year
  Sex: Female

DRUGS (4)
  1. LIORESAL [Suspect]
     Indication: MUSCLE SPASTICITY
     Dosage: DAILY, INTRATHECAL
     Route: 037
  2. FOLIC ACID [Concomitant]
  3. FERROUS SULFATE TAB [Concomitant]
  4. PANTOPRAZOLE SODIUM [Concomitant]

REACTIONS (7)
  - COUGH [None]
  - DYSPHAGIA [None]
  - DYSPNOEA [None]
  - HYPERTONIA [None]
  - LABORATORY TEST ABNORMAL [None]
  - PNEUMONIA ASPIRATION [None]
  - SOMNOLENCE [None]
